FAERS Safety Report 10023749 (Version 1)
Quarter: 2014Q1

REPORT INFORMATION
  Report Type: Spontaneous
  Country: US (occurrence: None)
  Receive Date: 20140304
  Receipt Date: 20140304
  Transmission Date: 20141002
  Serious: Yes (Other)
  Sender: FDA-Public Use
  Company Number: RB-59365-2013

PATIENT
  Age: 33 Year
  Sex: Male

DRUGS (2)
  1. SUBOXONE [Suspect]
     Indication: DRUG DEPENDENCE
     Dosage: (DOSING DETAILS UNKNOWN , CUTTING TABLET INTO VARIOUS SIZES AND DOSES FOR LESS THAN ONE MONTH)
     Dates: start: 201309
  2. HEROIN [Suspect]
     Indication: PRODUCT USED FOR UNKNOWN INDICATION
     Dosage: (DOSING DETAILS UNKNOWN UNKNOWN)

REACTIONS (8)
  - Substance abuse [None]
  - Wrong technique in drug usage process [None]
  - Drug withdrawal syndrome [None]
  - Hallucination, auditory [None]
  - Hyperhidrosis [None]
  - Vomiting [None]
  - Diarrhoea [None]
  - Drug abuse [None]
